FAERS Safety Report 13108547 (Version 1)
Quarter: 2017Q1

REPORT INFORMATION
  Report Type: Spontaneous
  Country: US (occurrence: US)
  Receive Date: 20170111
  Receipt Date: 20170111
  Transmission Date: 20170428
  Serious: Yes (Hospitalization, Disabling)
  Sender: FDA-Public Use
  Company Number: None

PATIENT
  Age: 76 Year
  Sex: Female
  Weight: 56.7 kg

DRUGS (4)
  1. LOVENOX [Suspect]
     Active Substance: ENOXAPARIN SODIUM
     Indication: THROMBOSIS PROPHYLAXIS
     Dosage: ?          OTHER FREQUENCY:ONCE;?
     Route: 058
     Dates: start: 20170104, end: 20170104
  2. OMEGA-3 FATTY ACIDS [Concomitant]
     Active Substance: OMEGA-3 FATTY ACIDS
  3. LOVENOX [Suspect]
     Active Substance: ENOXAPARIN SODIUM
     Indication: DEEP VEIN THROMBOSIS
     Dosage: ?          OTHER FREQUENCY:ONCE;?
     Route: 058
     Dates: start: 20170104, end: 20170104
  4. VITAMIN E [Concomitant]
     Active Substance: .ALPHA.-TOCOPHEROL

REACTIONS (6)
  - Hypotension [None]
  - Paralysis [None]
  - Asthenia [None]
  - Arthralgia [None]
  - Deep vein thrombosis [None]
  - Subdural haemorrhage [None]

NARRATIVE: CASE EVENT DATE: 20170104
